FAERS Safety Report 9043080 (Version 1)
Quarter: 2013Q1

REPORT INFORMATION
  Report Type: Report from Study
  Country: US (occurrence: US)
  Receive Date: 20130129
  Receipt Date: 20130129
  Transmission Date: 20140127
  Serious: No
  Sender: FDA-Public Use
  Company Number: US-ABBOTT-12P-163-0910614-00

PATIENT
  Age: 32 Year
  Sex: Female

DRUGS (4)
  1. HUMIRA 40 MG/0.8 ML PEN [Suspect]
     Indication: PSORIASIS
     Dosage: LOADING DOSE
     Dates: start: 20120223, end: 20120223
  2. HUMIRA 40 MG/0.8 ML PEN [Suspect]
  3. PROZAC [Concomitant]
     Indication: DEPRESSION
  4. IBUPROFEN [Concomitant]
     Indication: BACK PAIN
     Dosage: AT LEAST EVERY OTHER DAY IF NOT DAILY

REACTIONS (1)
  - Injection site bruising [Recovering/Resolving]
